FAERS Safety Report 11444109 (Version 4)
Quarter: 2015Q4

REPORT INFORMATION
  Report Type: Report from Study
  Country: US (occurrence: US)
  Receive Date: 20150901
  Receipt Date: 20151029
  Transmission Date: 20160304
  Serious: No
  Sender: FDA-Public Use
  Company Number: US-AMGEN-USASP2015088839

PATIENT
  Age: 58 Year
  Sex: Male

DRUGS (6)
  1. GABAPENTIN. [Concomitant]
     Active Substance: GABAPENTIN
     Indication: NEURALGIA
     Dosage: UNK
     Dates: start: 2015
  2. COLCRYS [Concomitant]
     Active Substance: COLCHICINE
     Indication: GASTRIC DISORDER
     Dosage: UNK
  3. SAVELLA [Suspect]
     Active Substance: MILNACIPRAN HYDROCHLORIDE
     Indication: FIBROMYALGIA
  4. ENBREL [Suspect]
     Active Substance: ETANERCEPT
     Indication: PSORIATIC ARTHROPATHY
     Dosage: 50 MG, QWK
     Route: 065
     Dates: start: 20150812
  5. SAVELLA [Suspect]
     Active Substance: MILNACIPRAN HYDROCHLORIDE
     Indication: DEPRESSION
     Dosage: UNK
     Route: 065
  6. SAVELLA [Suspect]
     Active Substance: MILNACIPRAN HYDROCHLORIDE
     Indication: NEURALGIA

REACTIONS (24)
  - Pain in extremity [Unknown]
  - Dysuria [Unknown]
  - Pruritus [Unknown]
  - Inflammation [Unknown]
  - Neuralgia [Unknown]
  - Musculoskeletal pain [Unknown]
  - Urinary tract infection [Recovering/Resolving]
  - Erythema [Unknown]
  - Local swelling [Not Recovered/Not Resolved]
  - Back pain [Not Recovered/Not Resolved]
  - Peripheral swelling [Unknown]
  - White blood cell count increased [Not Recovered/Not Resolved]
  - Hypoaesthesia [Unknown]
  - No therapeutic response [Unknown]
  - Depression [Unknown]
  - Drug effect delayed [Not Recovered/Not Resolved]
  - Neck pain [Unknown]
  - Psoriasis [Not Recovered/Not Resolved]
  - Arthralgia [Not Recovered/Not Resolved]
  - Fibromyalgia [Unknown]
  - Urinary tract disorder [Unknown]
  - Prostatitis [Not Recovered/Not Resolved]
  - Gastric disorder [Not Recovered/Not Resolved]
  - Abdominal distension [Not Recovered/Not Resolved]

NARRATIVE: CASE EVENT DATE: 2015
